FAERS Safety Report 5289232-0 (Version None)
Quarter: 2007Q1

REPORT INFORMATION
  Report Type: 
  Country: None (occurrence: None)
  Receive Date: 20070126
  Receipt Date: 20060302
  Transmission Date: 20070707
  Serious: Yes (Hospitalization)
  Sender: FDA-Public Use
  Company Number: 06P-163-0326640-00

PATIENT
  Age: 57 Year
  Sex: Female
  Weight: 49.8957 kg

DRUGS (5)
  1. OMNICEF [Suspect]
     Indication: SINUSITIS
     Dosage: 300 MG, 2 IN 1 D, PER ORAL
     Route: 048
     Dates: start: 20060204, end: 20060209
  2. LEVOTHYROXINE SODIUM [Concomitant]
  3. CLONAZEPAM [Concomitant]
  4. ESTRADIOL [Concomitant]
  5. RISEDRONATE SODIUM [Concomitant]

REACTIONS (1)
  - CLOSTRIDIAL INFECTION [None]
